FAERS Safety Report 5674891-0 (Version None)
Quarter: 2008Q1

REPORT INFORMATION
  Report Type: 
  Country: None (occurrence: None)
  Receive Date: 20080319
  Receipt Date: 20080319
  Transmission Date: 20080703
  Serious: Yes (Hospitalization)
  Sender: FDA-Public Use
  Company Number: None

PATIENT
  Sex: Male

DRUGS (12)
  1. REVLIMID [Suspect]
     Indication: MULTIPLE MYELOMA
     Dosage: 5MG DAILY 21D/28D PO
     Route: 048
  2. DEXAMETHASONE TAB [Concomitant]
  3. ASPIRIN [Concomitant]
  4. PROCRIT [Concomitant]
  5. VICODIN [Concomitant]
  6. CARVEDILOL [Concomitant]
  7. NOVOLOG [Concomitant]
  8. NORTRIPTYLINE HCL [Concomitant]
  9. NOVOLIN [Concomitant]
  10. COZAAR [Concomitant]
  11. LASIX [Concomitant]
  12. NITROGLYCERIN [Concomitant]

REACTIONS (3)
  - BLOOD CULTURE POSITIVE [None]
  - PERIRECTAL ABSCESS [None]
  - STAPHYLOCOCCAL INFECTION [None]
